FAERS Safety Report 7314359-9 (Version None)
Quarter: 2011Q1

REPORT INFORMATION
  Report Type: 
  Country: None (occurrence: None)
  Receive Date: 20110225
  Receipt Date: 20100924
  Transmission Date: 20110831
  Serious: No
  Sender: FDA-Public Use
  Company Number: US-MYLANLABS-2010S1013779

PATIENT
  Age: 18 Year
  Sex: Male

DRUGS (2)
  1. METHYLPHENIDATE [Concomitant]
  2. AMNESTEEM [Suspect]
     Indication: ACNE CYSTIC
     Dates: start: 20100622, end: 20100629

REACTIONS (3)
  - ABDOMINAL PAIN [None]
  - ABDOMINAL PAIN UPPER [None]
  - DIARRHOEA [None]
